FAERS Safety Report 9414507 (Version 1)
Quarter: 2013Q3

REPORT INFORMATION
  Report Type: Spontaneous
  Country: FI (occurrence: FI)
  Receive Date: 20130723
  Receipt Date: 20130723
  Transmission Date: 20140515
  Serious: Yes (Other)
  Sender: FDA-Public Use
  Company Number: FI-GLAXOSMITHKLINE-B0909822A

PATIENT
  Sex: Female

DRUGS (15)
  1. VALTREX [Suspect]
     Indication: HERPES ZOSTER
     Route: 048
     Dates: start: 20130424
  2. SOMAC [Concomitant]
     Dosage: 40MG PER DAY
  3. EMCONCOR [Concomitant]
     Dosage: 2.5MG PER DAY
  4. GALVUS [Concomitant]
     Dosage: 50MG PER DAY
  5. UNKNOWN DRUG [Concomitant]
     Dosage: 12G PER DAY
     Route: 048
  6. PRIMASPAN [Concomitant]
     Dosage: 100MG PER DAY
  7. SIMVASTATIN [Concomitant]
     Dosage: 10MG PER DAY
  8. ATRODUAL [Concomitant]
  9. BEMETSON [Concomitant]
  10. LAXOBERON [Concomitant]
  11. PANACOD [Concomitant]
  12. PARA-TABS [Concomitant]
  13. PRIMPERAN [Concomitant]
  14. VENTOLINE DISKUS [Concomitant]
  15. ZOLPIDEM TARTRATE [Concomitant]

REACTIONS (1)
  - Neutropenia [Unknown]
